FAERS Safety Report 18518100 (Version 1)
Quarter: 2020Q4

REPORT INFORMATION
  Report Type: Report from Study
  Country: None (occurrence: US)
  Receive Date: 20201118
  Receipt Date: 20201118
  Transmission Date: 20210114
  Serious: Yes (Other)
  Sender: FDA-Public Use
  Company Number: US-ABBVIE-20K-163-3527432-00

PATIENT
  Sex: Female

DRUGS (4)
  1. IMBRUVICA [Suspect]
     Active Substance: IBRUTINIB
     Indication: CHRONIC LYMPHOCYTIC LEUKAEMIA
     Route: 048
     Dates: start: 201805
  2. IMBRUVICA [Suspect]
     Active Substance: IBRUTINIB
     Indication: CHRONIC LYMPHOCYTIC LEUKAEMIA
     Route: 048
     Dates: start: 20190328
  3. IMBRUVICA [Suspect]
     Active Substance: IBRUTINIB
     Indication: CHRONIC LYMPHOCYTIC LEUKAEMIA
  4. IMBRUVICA [Suspect]
     Active Substance: IBRUTINIB
     Indication: CHRONIC LYMPHOCYTIC LEUKAEMIA

REACTIONS (13)
  - Ear infection [Unknown]
  - Weight decreased [Unknown]
  - Fatigue [Unknown]
  - Abdominal mass [Unknown]
  - Feeling jittery [Unknown]
  - Colitis [Unknown]
  - Asthenia [Unknown]
  - Decreased appetite [Unknown]
  - Pharyngitis [Unknown]
  - Nodule [Unknown]
  - Lymphadenitis [Unknown]
  - Renal neoplasm [Unknown]
  - Gastrooesophageal reflux disease [Unknown]
